FAERS Safety Report 10009782 (Version 2)
Quarter: 2014Q1

REPORT INFORMATION
  Report Type: Spontaneous
  Country: US (occurrence: US)
  Receive Date: 20140312
  Receipt Date: 20140312
  Transmission Date: 20141002
  Serious: No
  Sender: FDA-Public Use
  Company Number: US-INCYTE CORPORATION-2012IN002013

PATIENT
  Age: 70 Year
  Sex: Female

DRUGS (6)
  1. JAKAFI [Suspect]
     Indication: MYELOFIBROSIS
     Dosage: 15 MG, BID
     Route: 048
     Dates: start: 201203, end: 20120910
  2. JAKAFI [Suspect]
     Dosage: 15 MG, QD
     Route: 048
     Dates: start: 20121008
  3. THEOPHYLLINE [Concomitant]
  4. SECTRAL [Concomitant]
  5. CALCIUM W/MAGNESIUM/ZINC [Concomitant]
  6. CALCIUM + VITAMIN D [Concomitant]

REACTIONS (4)
  - Fatigue [Recovered/Resolved]
  - Anaemia [Recovered/Resolved]
  - Neutropenia [Recovered/Resolved]
  - Thrombocytopenia [Recovered/Resolved]
